FAERS Safety Report 4842114-8 (Version None)
Quarter: 2005Q4

REPORT INFORMATION
  Report Type: 
  Country: None (occurrence: None)
  Receive Date: 20051130
  Receipt Date: 20030130
  Transmission Date: 20060501
  Serious: Yes (Hospitalization, Other)
  Sender: FDA-Public Use
  Company Number: US-MERCK-0302USA00009

PATIENT
  Age: 65 Year
  Sex: Male
  Weight: 70 kg

DRUGS (18)
  1. VIOXX [Suspect]
     Indication: BONE PAIN
     Route: 048
     Dates: start: 20020603, end: 20030604
  2. VIOXX [Suspect]
     Route: 048
     Dates: start: 19990818
  3. VIOXX [Suspect]
     Route: 048
     Dates: start: 19991102
  4. VIOXX [Suspect]
     Route: 048
     Dates: start: 20010815, end: 20020816
  5. VIOXX [Suspect]
     Indication: ARTHRITIS
     Route: 048
     Dates: start: 20020603, end: 20030604
  6. VIOXX [Suspect]
     Route: 048
     Dates: start: 19990818
  7. VIOXX [Suspect]
     Route: 048
     Dates: start: 19991102
  8. VIOXX [Suspect]
     Route: 048
     Dates: start: 20010815, end: 20020816
  9. PRAVACHOL [Concomitant]
     Route: 065
  10. WELLBUTRIN SR [Concomitant]
     Route: 065
     Dates: start: 19990701
  11. PREVACID [Concomitant]
     Route: 065
  12. ACCUPRIL [Concomitant]
     Route: 065
     Dates: start: 19990818
  13. ECOTRIN [Concomitant]
     Route: 065
  14. EFFEXOR XR [Concomitant]
     Route: 065
     Dates: start: 19990601
  15. VICODIN [Concomitant]
     Route: 065
     Dates: start: 19990601
  16. ALTACE [Concomitant]
     Route: 065
  17. LISINOPRIL [Concomitant]
     Route: 065
     Dates: start: 20010815
  18. LIPITOR [Concomitant]
     Route: 065

REACTIONS (59)
  - ADJUSTMENT DISORDER [None]
  - ANXIETY [None]
  - ARRHYTHMIA SUPRAVENTRICULAR [None]
  - ARTERIOSCLEROSIS [None]
  - ARTHRALGIA [None]
  - BACK PAIN [None]
  - BLOOD PRESSURE INCREASED [None]
  - BLOOD URINE PRESENT [None]
  - BUNDLE BRANCH BLOCK LEFT [None]
  - BUNDLE BRANCH BLOCK RIGHT [None]
  - CATARACT [None]
  - CONCUSSION [None]
  - CORONARY ARTERY OCCLUSION [None]
  - DEPRESSION [None]
  - DIVERTICULUM INTESTINAL [None]
  - DIZZINESS [None]
  - DRUG INEFFECTIVE [None]
  - EYE DISORDER [None]
  - FAECAL INCONTINENCE [None]
  - FLANK PAIN [None]
  - GASTRIC DISORDER [None]
  - GASTRIC HAEMORRHAGE [None]
  - GASTROOESOPHAGEAL REFLUX DISEASE [None]
  - GROIN PAIN [None]
  - HAEMORRHOIDS [None]
  - HEADACHE [None]
  - HEPATIC CYST [None]
  - HERPES OPHTHALMIC [None]
  - HERPES VIRUS INFECTION [None]
  - HYPERLIPIDAEMIA [None]
  - HYPOAESTHESIA [None]
  - INFLUENZA [None]
  - INJURY [None]
  - INTERVERTEBRAL DISC DEGENERATION [None]
  - LUNG NEOPLASM [None]
  - MEDICATION ERROR [None]
  - MENIERE'S DISEASE [None]
  - MOOD SWINGS [None]
  - MUSCLE STRAIN [None]
  - MUSCULOSKELETAL CHEST PAIN [None]
  - MYOCARDIAL ISCHAEMIA [None]
  - NAUSEA [None]
  - NECK INJURY [None]
  - ORGASM ABNORMAL [None]
  - OSTEOARTHRITIS [None]
  - PAIN IN EXTREMITY [None]
  - PALPITATIONS [None]
  - PANCREATIC CYST [None]
  - PROSTATITIS [None]
  - RECTAL HAEMORRHAGE [None]
  - RENAL CYST [None]
  - ROAD TRAFFIC ACCIDENT [None]
  - ROTATOR CUFF SYNDROME [None]
  - SPINAL COLUMN STENOSIS [None]
  - SYNCOPE VASOVAGAL [None]
  - TENDONITIS [None]
  - ULCER [None]
  - VIRAL INFECTION [None]
  - WEIGHT INCREASED [None]
